FAERS Safety Report 18349380 (Version 1)
Quarter: 2020Q4

REPORT INFORMATION
  Report Type: Spontaneous
  Country: NL (occurrence: NL)
  Receive Date: 20201006
  Receipt Date: 20201006
  Transmission Date: 20210114
  Serious: Yes (Other)
  Sender: FDA-Public Use
  Company Number: NL-MYLANLABS-2020M1083802

PATIENT
  Sex: Female
  Weight: 68 kg

DRUGS (6)
  1. MONTELUKAST [Suspect]
     Active Substance: MONTELUKAST SODIUM
     Indication: HYPERSENSITIVITY
     Dosage: 1X PER DAG 1 TABLET
     Dates: start: 202007, end: 20200901
  2. ESOMEPRAZOL                        /01479301/ [Concomitant]
     Active Substance: ESOMEPRAZOLE
     Dosage: MAAGSAPRESISTENTE CAPSULE, 40 MG (MILLIGRAM)
  3. MAGNESIUMHYDROXIDE [Concomitant]
     Dosage: KAUWTABLET, 724 MG (MILLIGRAM)
  4. FEXOFENADINE [Concomitant]
     Active Substance: FEXOFENADINE HYDROCHLORIDE
     Dosage: OMHULDE TABLET, 180 MG (MILLIGRAM)
  5. DISTIGMINE [Concomitant]
     Dosage: TABLET, 5 MG (MILLIGRAM)
  6. NALCROM [Concomitant]
     Active Substance: CROMOLYN SODIUM
     Dosage: ZAKJE (GRANULAAT), 200 MG (MILLIGRAM)

REACTIONS (8)
  - Emotional disorder [Not Recovered/Not Resolved]
  - Suicidal ideation [Not Recovered/Not Resolved]
  - Nightmare [Not Recovered/Not Resolved]
  - Irritability [Not Recovered/Not Resolved]
  - Insomnia [Not Recovered/Not Resolved]
  - Hallucination [Not Recovered/Not Resolved]
  - Depressed mood [Not Recovered/Not Resolved]
  - Restlessness [Not Recovered/Not Resolved]
